FAERS Safety Report 5619259-8 (Version None)
Quarter: 2008Q1

REPORT INFORMATION
  Report Type: 
  Country: None (occurrence: None)
  Receive Date: 20080205
  Receipt Date: 20080125
  Transmission Date: 20080703
  Serious: Yes (Death)
  Sender: FDA-Public Use
  Company Number: E2020-02122-SPO-JP

PATIENT
  Age: 72 Year
  Sex: Female

DRUGS (3)
  1. ARICEPT [Suspect]
     Indication: DEMENTIA ALZHEIMER'S TYPE
     Dosage: ORAL; 10 MG, 1 IN 1 D, ORAL
     Route: 048
     Dates: start: 20011221, end: 20071221
  2. ARICEPT [Suspect]
     Indication: DEMENTIA ALZHEIMER'S TYPE
     Dosage: ORAL; 10 MG, 1 IN 1 D, ORAL
     Route: 048
     Dates: start: 20071222
  3. SERMION (NICERGOLINE) [Concomitant]

REACTIONS (4)
  - CARDIAC ARREST [None]
  - INCONTINENCE [None]
  - MUSCULAR WEAKNESS [None]
  - NAUSEA [None]
